FAERS Safety Report 21058958 (Version 2)
Quarter: 2022Q3

REPORT INFORMATION
  Report Type: Spontaneous
  Country: CA (occurrence: CA)
  Receive Date: 20220708
  Receipt Date: 20220916
  Transmission Date: 20221027
  Serious: Yes (Other)
  Sender: FDA-Public Use
  Company Number: CA-SAMSUNG BIOEPIS-SB-2022-16373

PATIENT
  Age: 43 Year

DRUGS (1)
  1. INFLIXIMAB [Suspect]
     Active Substance: INFLIXIMAB
     Indication: Product used for unknown indication
     Dosage: UNKNOWN
     Route: 065

REACTIONS (6)
  - Back pain [Unknown]
  - Neck pain [Unknown]
  - Pruritus [Unknown]
  - Tooth abscess [Unknown]
  - COVID-19 [Unknown]
  - Abscess oral [Unknown]
